FAERS Safety Report 9324680 (Version 4)
Quarter: 2014Q2

REPORT INFORMATION
  Report Type: Report from Study
  Country: JP (occurrence: JP)
  Receive Date: 20130603
  Receipt Date: 20140521
  Transmission Date: 20141212
  Serious: No
  Sender: FDA-Public Use
  Company Number: JP-GLAXOSMITHKLINE-B0889908A

PATIENT
  Age: 50 Year
  Sex: Male
  Weight: 64 kg

DRUGS (5)
  1. VOTRIENT 200MG [Suspect]
     Indication: LIPOSARCOMA
     Dosage: 600MG PER DAY
     Route: 048
     Dates: start: 20130420, end: 20130524
  2. VOTRIENT 200MG [Suspect]
     Indication: LIPOSARCOMA
     Dosage: 400MG PER DAY
     Route: 048
     Dates: start: 20130525
  3. CHINESE MEDICINE [Suspect]
     Route: 048
  4. METHYCOBAL [Concomitant]
     Indication: LIPOSARCOMA
     Route: 048
  5. MAGMITT [Concomitant]
     Route: 048

REACTIONS (9)
  - Palmar-plantar erythrodysaesthesia syndrome [Recovering/Resolving]
  - Hypertension [Not Recovered/Not Resolved]
  - Hepatic function abnormal [Recovered/Resolved]
  - Diarrhoea [Recovering/Resolving]
  - Vitreous floaters [Not Recovered/Not Resolved]
  - Nausea [Recovered/Resolved]
  - Headache [Recovering/Resolving]
  - Fatigue [Recovered/Resolved]
  - Weight decreased [Unknown]
